FAERS Safety Report 4347312-8 (Version None)
Quarter: 2004Q2

REPORT INFORMATION
  Report Type: 
  Country: None (occurrence: None)
  Receive Date: 20040422
  Receipt Date: 20040408
  Transmission Date: 20050107
  Serious: Yes (Hospitalization)
  Sender: FDA-Public Use
  Company Number: EWC040338533

PATIENT
  Age: 65 Year
  Sex: Female

DRUGS (9)
  1. EVISTA [Suspect]
     Indication: OSTEOPOROSIS POSTMENOPAUSAL
     Dosage: 60 MG/1 DAY
     Dates: start: 20040224, end: 20040228
  2. VITACALCIN (CALCIUM CARBONATE) [Concomitant]
  3. LEVOTHYROXINE SODIUM [Concomitant]
  4. SANDONORM (BOPINDOLOL) [Concomitant]
  5. MODURETIC 5-50 [Concomitant]
  6. CERUCAL (METOCLOPRAMIDE HYDROCHLORIDE) [Concomitant]
  7. ARUTIMOL (TIMOLOL MALEATE) [Concomitant]
  8. HELICID (OMEPRAZOLE) [Concomitant]
  9. STILNOX (ZOLPIDEM) [Concomitant]

REACTIONS (4)
  - HYPERSENSITIVITY [None]
  - RASH PAPULAR [None]
  - TOXIC SKIN ERUPTION [None]
  - VASCULITIS [None]
